FAERS Safety Report 17742166 (Version 2)
Quarter: 2020Q2

REPORT INFORMATION
  Report Type: Spontaneous
  Country: PL (occurrence: PL)
  Receive Date: 20200505
  Receipt Date: 20200507
  Transmission Date: 20200714
  Serious: Yes (Hospitalization, Other)
  Sender: FDA-Public Use
  Company Number: PL-B.I. PHARMACEUTICALS,INC./RIDGEFIELD-2020-BI-022371

PATIENT
  Age: 78 Year
  Sex: Female

DRUGS (1)
  1. MOVALIS [Suspect]
     Active Substance: MELOXICAM
     Indication: SPINAL PAIN
     Route: 030

REACTIONS (3)
  - Pyoderma gangrenosum [Not Recovered/Not Resolved]
  - Necrosis [Not Recovered/Not Resolved]
  - Pneumonia [Not Recovered/Not Resolved]
